FAERS Safety Report 6648815-3 (Version None)
Quarter: 2010Q1

REPORT INFORMATION
  Report Type: 
  Country: None (occurrence: None)
  Receive Date: 20100324
  Receipt Date: 20100312
  Transmission Date: 20100710
  Serious: Yes (Other)
  Sender: FDA-Public Use
  Company Number: PHHY2010SI15988

PATIENT
  Sex: Male

DRUGS (3)
  1. PAMIDRONATE DISODIUM [Suspect]
     Dosage: UNK
     Route: 042
  2. ZOLEDRONIC ACID [Suspect]
     Indication: PLASMACYTOMA
     Route: 042
  3. CLODRONATE DISODIUM [Concomitant]
     Route: 042

REACTIONS (2)
  - BONE DISORDER [None]
  - OSTEONECROSIS [None]
